FAERS Safety Report 18057455 (Version 3)
Quarter: 2020Q4

REPORT INFORMATION
  Report Type: Report from Study
  Country: None (occurrence: CO)
  Receive Date: 20200723
  Receipt Date: 20201105
  Transmission Date: 20210113
  Serious: Yes (Hospitalization, Other)
  Sender: FDA-Public Use
  Company Number: CO-ABBVIE-20K-036-3493010-00

PATIENT
  Age: 61 Year
  Sex: Male
  Weight: 87 kg

DRUGS (2)
  1. HUMIRA [Suspect]
     Active Substance: ADALIMUMAB
     Indication: ANKYLOSING SPONDYLITIS
     Route: 058
     Dates: end: 20200515
  2. HUMIRA [Suspect]
     Active Substance: ADALIMUMAB
     Indication: ANKYLOSING SPONDYLITIS
     Route: 058
     Dates: start: 20120528

REACTIONS (12)
  - Musculoskeletal stiffness [Not Recovered/Not Resolved]
  - Cellulitis [Not Recovered/Not Resolved]
  - Scar [Unknown]
  - Joint swelling [Not Recovered/Not Resolved]
  - Wound [Not Recovered/Not Resolved]
  - Arthralgia [Not Recovered/Not Resolved]
  - Inflammation [Unknown]
  - Urticaria [Not Recovered/Not Resolved]
  - Joint effusion [Not Recovered/Not Resolved]
  - Arthropathy [Not Recovered/Not Resolved]
  - Immunodeficiency [Not Recovered/Not Resolved]
  - Arthritis [Not Recovered/Not Resolved]

NARRATIVE: CASE EVENT DATE: 201702
